FAERS Safety Report 6890508-1 (Version None)
Quarter: 2010Q3

REPORT INFORMATION
  Report Type: 
  Country: None (occurrence: None)
  Receive Date: 20100731
  Receipt Date: 20081112
  Transmission Date: 20110219
  Serious: Yes (Other)
  Sender: FDA-Public Use
  Company Number: US-PFIZER INC-2008081079

PATIENT
  Sex: Male
  Weight: 75.909 kg

DRUGS (4)
  1. LIPITOR [Suspect]
     Indication: CORONARY ARTERY OCCLUSION
     Dates: start: 20070101, end: 20080701
  2. CHANTIX [Suspect]
     Indication: SMOKING CESSATION THERAPY
     Dosage: 1MG ONCE DAILY
     Dates: start: 20070901, end: 20080601
  3. ACETYLSALICYLIC ACID SRT [Concomitant]
  4. TERAZOSIN HCL [Concomitant]
     Indication: PROSTATIC DISORDER

REACTIONS (11)
  - ANAEMIA [None]
  - ASTHENIA [None]
  - FATIGUE [None]
  - INCORRECT DOSE ADMINISTERED [None]
  - MUSCULAR WEAKNESS [None]
  - RASH [None]
  - RASH MACULAR [None]
  - RASH PAPULAR [None]
  - RASH PRURITIC [None]
  - TREMOR [None]
  - WRONG TECHNIQUE IN DRUG USAGE PROCESS [None]
